FAERS Safety Report 6450987-0 (Version None)
Quarter: 2009Q4

REPORT INFORMATION
  Report Type: 
  Country: None (occurrence: None)
  Receive Date: 20091123
  Receipt Date: 20091116
  Transmission Date: 20100525
  Serious: Yes (Other)
  Sender: FDA-Public Use
  Company Number: B0600797A

PATIENT
  Sex: Female

DRUGS (8)
  1. PAXIL [Suspect]
     Indication: PANIC DISORDER
     Dosage: 30MG PER DAY
     Route: 048
     Dates: start: 20031004
  2. PL [Suspect]
     Indication: NASOPHARYNGITIS
     Dosage: 1G THREE TIMES PER DAY
     Route: 048
  3. CALONAL [Suspect]
     Indication: NASOPHARYNGITIS
     Dosage: 200MG PER DAY
     Route: 048
  4. NAUZELIN [Suspect]
     Indication: DRUG USE FOR UNKNOWN INDICATION
     Route: 065
  5. UNKNOWN DRUG [Suspect]
     Indication: DRUG USE FOR UNKNOWN INDICATION
     Route: 048
  6. TANNALBIN [Suspect]
     Indication: DRUG USE FOR UNKNOWN INDICATION
     Route: 048
  7. LOPEMIN [Suspect]
     Indication: DRUG USE FOR UNKNOWN INDICATION
     Route: 048
  8. DEPAS [Concomitant]
     Indication: PANIC DISORDER
     Dosage: 1MG PER DAY
     Route: 048

REACTIONS (2)
  - HYPOAESTHESIA [None]
  - MUSCULOSKELETAL STIFFNESS [None]
